FAERS Safety Report 11866994 (Version 3)
Quarter: 2016Q1

REPORT INFORMATION
  Report Type: Spontaneous
  Country: JP (occurrence: JP)
  Receive Date: 20151224
  Receipt Date: 20160211
  Transmission Date: 20160526
  Serious: Yes (Other)
  Sender: FDA-Public Use
  Company Number: JP-ELI_LILLY_AND_COMPANY-JP201512002442

PATIENT
  Age: 65 Year
  Sex: Male

DRUGS (3)
  1. G LASTA [Suspect]
     Active Substance: PEGFILGRASTIM
     Indication: PRODUCT USED FOR UNKNOWN INDICATION
     Dosage: UNK
     Route: 058
     Dates: start: 20151209, end: 20151211
  2. CYRAMZA [Suspect]
     Active Substance: RAMUCIRUMAB
     Indication: GASTRIC CANCER
     Dosage: UNK
     Route: 042
     Dates: start: 20151120
  3. PACLITAXEL. [Suspect]
     Active Substance: PACLITAXEL
     Indication: GASTRIC CANCER
     Dosage: UNK
     Route: 042
     Dates: start: 20151120

REACTIONS (8)
  - C-reactive protein increased [Unknown]
  - Ureteric stenosis [Recovering/Resolving]
  - Blood urea increased [Unknown]
  - Platelet count decreased [Recovering/Resolving]
  - Blood creatinine increased [Unknown]
  - White blood cell count increased [Recovering/Resolving]
  - Epistaxis [Recovered/Resolved]
  - Gamma-glutamyltransferase increased [Unknown]

NARRATIVE: CASE EVENT DATE: 20151201
